FAERS Safety Report 20367625 (Version 2)
Quarter: 2022Q1

REPORT INFORMATION
  Report Type: Spontaneous
  Country: US (occurrence: US)
  Receive Date: 20220124
  Receipt Date: 20220313
  Transmission Date: 20220423
  Serious: No
  Sender: FDA-Public Use
  Company Number: US-SA-SAC20220118000591

PATIENT
  Age: 9 Year
  Sex: Male

DRUGS (1)
  1. DUPIXENT [Suspect]
     Active Substance: DUPILUMAB
     Dosage: 200 MG, FREQUENCY: OTHER
     Route: 058
     Dates: start: 202009

REACTIONS (5)
  - Nasal congestion [Unknown]
  - Cough [Unknown]
  - Wheezing [Unknown]
  - Lower respiratory tract infection [Unknown]
  - Product use issue [Unknown]

NARRATIVE: CASE EVENT DATE: 20220109
